FAERS Safety Report 6886204 (Version 2)
Quarter: 2020Q3

REPORT INFORMATION
  Report Type: Report from Study
  Country: US (occurrence: US)
  Receive Date: 20090119
  Receipt Date: 20090217
  Transmission Date: 20201104
  Serious: Yes (Other)
  Sender: FDA-Public Use
  Company Number: US-ROCHE-606752

PATIENT
  Age: 61 Year
  Sex: Male
  Weight: 71.7 kg

DRUGS (13)
  1. SPIRIVA [Concomitant]
     Active Substance: TIOTROPIUM BROMIDE MONOHYDRATE
  2. THEOPHYLLINE [Concomitant]
     Active Substance: THEOPHYLLINE ANHYDROUS
  3. FORTEO [Suspect]
     Active Substance: TERIPARATIDE
     Indication: OSTEOPOROSIS
     Route: 058
     Dates: start: 20031204, end: 20051201
  4. CULTURELLE [Concomitant]
     Dosage: DRUG REPORTED: ULTURELLE
  5. IBANDRONIC ACID. [Suspect]
     Active Substance: IBANDRONIC ACID
     Route: 048
     Dates: start: 20051202
  6. IBUPROFEN. [Concomitant]
     Active Substance: IBUPROFEN
     Dosage: DRUG REPORTED: BUPROFEN
  7. PRAVASTATIN. [Concomitant]
     Active Substance: PRAVASTATIN
  8. FLOMAX [Concomitant]
     Active Substance: TAMSULOSIN HYDROCHLORIDE
  9. IBANDRONIC ACID. [Suspect]
     Active Substance: IBANDRONIC ACID
     Indication: OSTEOPOROSIS
     Route: 048
     Dates: start: 2001
  10. ASACOL [Concomitant]
     Active Substance: MESALAMINE
  11. LEVOTHYROXINE. [Concomitant]
     Active Substance: LEVOTHYROXINE
  12. ZOCOR [Concomitant]
     Active Substance: SIMVASTATIN
  13. WARFARIN SODIUM. [Concomitant]
     Active Substance: WARFARIN SODIUM

REACTIONS (4)
  - Colitis [Unknown]
  - Bone density decreased [Unknown]
  - Colon cancer [Unknown]
  - Thrombosis [Unknown]

NARRATIVE: CASE EVENT DATE: 20070401
